FAERS Safety Report 8398547-9 (Version None)
Quarter: 2012Q2

REPORT INFORMATION
  Report Type: 
  Country: None (occurrence: None)
  Receive Date: 20120531
  Receipt Date: 20120528
  Transmission Date: 20120825
  Serious: Yes (Hospitalization)
  Sender: FDA-Public Use
  Company Number: IT-BAYER-2012-052440

PATIENT
  Age: 16 Year
  Sex: Female

DRUGS (1)
  1. YAZ [Suspect]
     Indication: MENSTRUATION IRREGULAR
     Dosage: DAILY DOSE 3.02 MG
     Route: 048
     Dates: start: 20120101, end: 20120518

REACTIONS (2)
  - URINE COLOUR ABNORMAL [None]
  - HYPERTRANSAMINASAEMIA [None]
